FAERS Safety Report 16255832 (Version 2)
Quarter: 2019Q2

REPORT INFORMATION
  Report Type: Report from Study
  Country: SG (occurrence: SG)
  Receive Date: 20190430
  Receipt Date: 20190514
  Transmission Date: 20190711
  Serious: Yes (Death)
  Sender: FDA-Public Use
  Company Number: SG-AMREGENT-20190855

PATIENT
  Age: 82 Year
  Sex: Male
  Weight: 82.2 kg

DRUGS (14)
  1. FERINJECT [Suspect]
     Active Substance: FERRIC CARBOXYMALTOSE
     Dosage: 10 ML
     Route: 040
     Dates: start: 20180429, end: 20180429
  2. ACETYLCYSTEINE. [Concomitant]
     Active Substance: ACETYLCYSTEINE
     Dosage: 600 MG AS REQUIRED
     Route: 048
     Dates: start: 20181010
  3. BISOPROLOL FUMARATE. [Concomitant]
     Active Substance: BISOPROLOL FUMARATE
     Dosage: 5 MG , 1 IN 1D
     Route: 048
     Dates: start: 20180501, end: 2018
  4. ATORVASTATIN [Concomitant]
     Active Substance: ATORVASTATIN
     Dosage: 20 MG , 1 IN 1D
     Route: 048
     Dates: start: 20150714
  5. TRIMETAZIDINE HCL [Concomitant]
     Active Substance: TRIMETAZIDINE
     Dosage: 40 MG, (20 MG, 2 IN 1D)
     Route: 048
     Dates: start: 20180616
  6. HYPROMELLOSE [Concomitant]
     Active Substance: HYPROMELLOSES
     Dosage: 1 DOSAGE FORMS, 1 IN 4 HR
     Route: 047
     Dates: start: 20190110
  7. PERIDOPRIL ERBUMINE [Concomitant]
     Dosage: 2 MG, 1 IN 1D
     Route: 048
     Dates: start: 20180501, end: 2018
  8. ALLOPURINOL. [Concomitant]
     Active Substance: ALLOPURINOL
     Dosage: 100 MG 1 IN 1D
     Route: 048
     Dates: start: 20150408
  9. SPIRONOLACTONE. [Concomitant]
     Active Substance: SPIRONOLACTONE
     Dosage: 25 MG 1 IN 1D
     Route: 048
     Dates: start: 20180501, end: 20190103
  10. RIVARAOXABAN [Concomitant]
     Dosage: 15 MG , 1 IN 1D
     Route: 048
     Dates: start: 20180501
  11. OMEPRAZOLE. [Concomitant]
     Active Substance: OMEPRAZOLE
     Dosage: 20 MG, 1 IN 1D
     Route: 048
     Dates: start: 20180428
  12. GLYCERYL TRINITRATE [Concomitant]
     Active Substance: NITROGLYCERIN
     Dosage: 0.5 MG , 1 IN 1D
     Route: 060
     Dates: start: 20150714
  13. PREDNISOLONE. [Concomitant]
     Active Substance: PREDNISOLONE
     Dosage: 30 MG (10 MG 3 IN 1D)
     Route: 048
     Dates: start: 20190103, end: 20190108
  14. ISOSORBIDE MONONITRATE. [Concomitant]
     Active Substance: ISOSORBIDE MONONITRATE
     Dosage: 30 MG, 1 IN 1 D
     Route: 048
     Dates: start: 20180616

REACTIONS (1)
  - Aortic dissection [Fatal]

NARRATIVE: CASE EVENT DATE: 20190202
